FAERS Safety Report 6398780-1 (Version None)
Quarter: 2009Q4

REPORT INFORMATION
  Report Type: 
  Country: None (occurrence: None)
  Receive Date: 20091013
  Receipt Date: 20091008
  Transmission Date: 20100525
  Serious: Yes (Other)
  Sender: FDA-Public Use
  Company Number: ES-GILEAD-E2B_00000463

PATIENT
  Age: 39 Year
  Sex: Male

DRUGS (1)
  1. ATRIPLA [Suspect]
     Indication: HIV INFECTION
     Route: 048
     Dates: start: 20090530, end: 20090615

REACTIONS (2)
  - MIGRAINE [None]
  - PHOTOPHOBIA [None]
